FAERS Safety Report 17771015 (Version 1)
Quarter: 2020Q2

REPORT INFORMATION
  Report Type: Spontaneous
  Country: US (occurrence: US)
  Receive Date: 20200512
  Receipt Date: 20200512
  Transmission Date: 20200714
  Serious: No
  Sender: FDA-Public Use
  Company Number: None

PATIENT
  Age: 68 Year
  Sex: Female
  Weight: 76.5 kg

DRUGS (14)
  1. VITAMIN C [Concomitant]
     Active Substance: ASCORBIC ACID
  2. D MANNOSE [Concomitant]
  3. TECHNETIUM TC-99M SESTAMIBI [Suspect]
     Active Substance: TECHNETIUM TC-99M SESTAMIBI
     Indication: ELECTROCARDIOGRAM ABNORMAL
     Dosage: ?          OTHER STRENGTH:MILLICARIES;QUANTITY:2 INJECTION(S);?
  4. CALCIUM WITH D [Concomitant]
     Active Substance: CALCIUM\VITAMIN D
  5. VITAMIN D3 [Concomitant]
     Active Substance: CHOLECALCIFEROL
  6. TURMERIC [Concomitant]
     Active Substance: HERBALS\TURMERIC
  7. L-IYCINE [Concomitant]
  8. LEXISCAN [Suspect]
     Active Substance: REGADENOSON
  9. FENOFIBRATE. [Concomitant]
     Active Substance: FENOFIBRATE
  10. BIOTON [Concomitant]
  11. NIACIN. [Concomitant]
     Active Substance: NIACIN
  12. FISH OIL [Concomitant]
     Active Substance: FISH OIL
  13. OSTEOBIFLEX [Concomitant]
  14. CRANBERRY. [Concomitant]
     Active Substance: CRANBERRY

REACTIONS (6)
  - Anaphylactic reaction [None]
  - Dyspnoea [None]
  - Vascular rupture [None]
  - Heart rate increased [None]
  - Dysphonia [None]
  - Dysphagia [None]

NARRATIVE: CASE EVENT DATE: 20190122
